FAERS Safety Report 8834366 (Version 2)
Quarter: 2014Q2

REPORT INFORMATION
  Report Type: Spontaneous
  Country: GB (occurrence: GB)
  Receive Date: 20121010
  Receipt Date: 20131017
  Transmission Date: 20141212
  Serious: Yes (Hospitalization)
  Sender: FDA-Public Use
  Company Number: GB-PFIZER INC-2012247720

PATIENT
  Age: 68 Year
  Sex: Female

DRUGS (2)
  1. MORPHINE SULFATE [Suspect]
     Dosage: 50 MG, UNK
  2. CODEINE [Suspect]
     Indication: PROCEDURAL PAIN
     Dosage: 76 MG, UNK

REACTIONS (1)
  - Toxicity to various agents [Recovered/Resolved]
